FAERS Safety Report 8378904-7 (Version None)
Quarter: 2012Q2

REPORT INFORMATION
  Report Type: 
  Country: None (occurrence: None)
  Receive Date: 20120522
  Receipt Date: 20120522
  Transmission Date: 20120825
  Serious: Yes (Other)
  Sender: FDA-Public Use
  Company Number: None

PATIENT
  Age: 69 Year
  Sex: Female
  Weight: 68.9467 kg

DRUGS (1)
  1. PERCOCET [Suspect]
     Dosage: 3 DAILY 3AM-6AM-9PM
     Dates: start: 20120420, end: 20120422

REACTIONS (6)
  - ABASIA [None]
  - TREMOR [None]
  - HEADACHE [None]
  - VISION BLURRED [None]
  - VOMITING [None]
  - NERVOUS SYSTEM DISORDER [None]
